FAERS Safety Report 19410462 (Version 1)
Quarter: 2021Q2

REPORT INFORMATION
  Report Type: Spontaneous
  Country: US (occurrence: US)
  Receive Date: 20210613
  Receipt Date: 20210613
  Transmission Date: 20210717
  Serious: Yes (Hospitalization, Disabling)
  Sender: FDA-Public Use
  Company Number: None

PATIENT
  Age: 47 Year
  Sex: Female
  Weight: 69.75 kg

DRUGS (7)
  1. MOTRIN [Concomitant]
     Active Substance: IBUPROFEN
  2. OCREVUS [Suspect]
     Active Substance: OCRELIZUMAB
     Indication: MULTIPLE SCLEROSIS
     Dosage: ?          QUANTITY:600 MG;OTHER FREQUENCY:EVERY 6 MONTHS;?
     Route: 042
     Dates: start: 20170606, end: 20210209
  3. VITAMIN D 1000 IU [Concomitant]
  4. BIOTEN 300 MG [Concomitant]
  5. IVIG 80 GRAMS [Concomitant]
  6. BABY ASPIRIN 81MG [Concomitant]
  7. APYRA 10MG [Concomitant]

REACTIONS (37)
  - Gait disturbance [None]
  - Burning sensation [None]
  - Cellulitis [None]
  - Rash [None]
  - Dry skin [None]
  - Pain in extremity [None]
  - Alopecia [None]
  - Blood cholesterol increased [None]
  - Blood magnesium decreased [None]
  - Arthralgia [None]
  - Asthenia [None]
  - Stomatitis [None]
  - Skin exfoliation [None]
  - Weight increased [None]
  - Lymphoedema [None]
  - Breast pain [None]
  - Fatigue [None]
  - Peroneal nerve palsy [None]
  - Breast swelling [None]
  - Polymenorrhoea [None]
  - Pruritus [None]
  - Constipation [None]
  - Muscle spasticity [None]
  - Peripheral swelling [None]
  - Skin ulcer [None]
  - Urinary tract infection [None]
  - Menstruation irregular [None]
  - Anal incontinence [None]
  - Multiple sclerosis [None]
  - Muscular weakness [None]
  - Rash macular [None]
  - Temperature regulation disorder [None]
  - Urinary incontinence [None]
  - Flatulence [None]
  - Taste disorder [None]
  - Vision blurred [None]
  - Abscess limb [None]

NARRATIVE: CASE EVENT DATE: 20210322
